FAERS Safety Report 12840108 (Version 2)
Quarter: 2016Q4

REPORT INFORMATION
  Report Type: Report from Study
  Country: None (occurrence: BR)
  Receive Date: 20161012
  Receipt Date: 20161013
  Transmission Date: 20170207
  Serious: Yes (Hospitalization)
  Sender: FDA-Public Use
  Company Number: BR-ABBVIE-16K-020-1745513-00

PATIENT
  Age: 45 Year
  Sex: Female
  Weight: 86 kg

DRUGS (7)
  1. METHOTREXATE. [Concomitant]
     Active Substance: METHOTREXATE
     Indication: AUTOIMMUNE DISORDER
     Route: 048
  2. TILATIL [Concomitant]
     Active Substance: TENOXICAM
     Indication: PAIN
     Dosage: 1 IN 1 WEEK, AS REQUIRED
     Route: 042
  3. SINVASTATINA [Concomitant]
     Active Substance: SIMVASTATIN
     Indication: PRODUCT USED FOR UNKNOWN INDICATION
  4. FOLIC ACID. [Concomitant]
     Active Substance: FOLIC ACID
     Indication: ANAEMIA PROPHYLAXIS
     Route: 048
  5. PREDNISOLONE. [Concomitant]
     Active Substance: PREDNISOLONE
     Indication: INFLAMMATORY PAIN
  6. HUMIRA [Suspect]
     Active Substance: ADALIMUMAB
     Indication: RHEUMATOID ARTHRITIS
     Route: 058
     Dates: start: 20150423
  7. PRELONE [Concomitant]
     Active Substance: PREDNISOLONE
     Indication: INFLAMMATORY PAIN
     Route: 048
     Dates: start: 2013

REACTIONS (21)
  - Middle ear inflammation [Recovering/Resolving]
  - Musculoskeletal pain [Recovering/Resolving]
  - Pain in extremity [Not Recovered/Not Resolved]
  - Thyroxine abnormal [Not Recovered/Not Resolved]
  - Gastritis [Recovering/Resolving]
  - Muscle spasms [Recovering/Resolving]
  - Lactose intolerance [Recovering/Resolving]
  - Swelling face [Recovering/Resolving]
  - Sjogren^s syndrome [Not Recovered/Not Resolved]
  - Tri-iodothyronine abnormal [Not Recovered/Not Resolved]
  - Foot deformity [Not Recovered/Not Resolved]
  - Joint swelling [Not Recovered/Not Resolved]
  - Parotid gland enlargement [Recovering/Resolving]
  - Blood calcium decreased [Unknown]
  - Spinal pain [Recovering/Resolving]
  - Hypothyroidism [Unknown]
  - Abdominal pain [Not Recovered/Not Resolved]
  - Oestradiol abnormal [Not Recovered/Not Resolved]
  - Haemorrhage [Recovering/Resolving]
  - Back pain [Recovering/Resolving]
  - Rash papular [Not Recovered/Not Resolved]

NARRATIVE: CASE EVENT DATE: 201507
